FAERS Safety Report 4287152-1 (Version None)
Quarter: 2004Q1

REPORT INFORMATION
  Report Type: 
  Country: None (occurrence: None)
  Receive Date: 20040121
  Receipt Date: 20031023
  Transmission Date: 20041129
  Serious: Yes (Other)
  Sender: FDA-Public Use
  Company Number: A03200301647

PATIENT
  Age: 71 Year
  Sex: Female
  Weight: 53.5244 kg

DRUGS (2)
  1. PLAVIX [Suspect]
     Indication: HYPOAESTHESIA
     Dosage: 75 MG QD - ORAL
     Route: 048
     Dates: start: 20030701, end: 20030805
  2. PLAVIX [Suspect]
     Indication: TRANSIENT ISCHAEMIC ATTACK
     Dosage: 75 MG QD - ORAL
     Route: 048
     Dates: start: 20030701, end: 20030805

REACTIONS (2)
  - CONTUSION [None]
  - RECTAL HAEMORRHAGE [None]
